FAERS Safety Report 9013817 (Version 1)
Quarter: 2012Q4

REPORT INFORMATION
  Report Type: Spontaneous
  Country: US (occurrence: None)
  Receive Date: 20121201
  Receipt Date: 20121201
  Transmission Date: 20130627
  Serious: Yes (Other)
  Sender: FDA-Public Use
  Company Number: None

PATIENT
  Age: 31 Year
  Sex: Female
  Weight: 43.55 kg

DRUGS (1)
  1. TOPIRAMATE [Suspect]
     Indication: MIGRAINE
     Dosage: 2 tabs   am and pm   po
     Route: 048
     Dates: start: 201209

REACTIONS (4)
  - Migraine [None]
  - Fatigue [None]
  - Ocular hyperaemia [None]
  - Product substitution issue [None]
